FAERS Safety Report 15674355 (Version 1)
Quarter: 2018Q4

REPORT INFORMATION
  Report Type: Spontaneous
  Country: ZA (occurrence: ZA)
  Receive Date: 20181130
  Receipt Date: 20181130
  Transmission Date: 20190205
  Serious: No
  Sender: FDA-Public Use
  Company Number: ZA-LUPIN PHARMACEUTICALS INC.-2018-03957

PATIENT
  Sex: Female

DRUGS (3)
  1. ZARTAN 100 MG [Suspect]
     Active Substance: LOSARTAN POTASSIUM
     Indication: HYPERTENSION
     Dosage: 100 MG, QOD (HALF TABLET EVERY TWO DAY)
     Route: 048
  2. ZARTAN 50 MG [Suspect]
     Active Substance: LOSARTAN POTASSIUM
     Indication: HYPERTENSION
     Dosage: 1 DF, QOD
     Route: 048
  3. ESTROFEM                           /00045401/ [Concomitant]
     Active Substance: ESTRADIOL
     Indication: HORMONE REPLACEMENT THERAPY
     Dosage: 1 MG, UNK
     Route: 048

REACTIONS (2)
  - Dizziness [Unknown]
  - Wrong technique in product usage process [Unknown]
